FAERS Safety Report 19680783 (Version 2)
Quarter: 2021Q3

REPORT INFORMATION
  Report Type: Spontaneous
  Country: US (occurrence: US)
  Receive Date: 20210810
  Receipt Date: 20210901
  Transmission Date: 20211014
  Serious: Yes (Death, Other)
  Sender: FDA-Public Use
  Company Number: US-AMGEN-USASP2021116716

PATIENT
  Age: 14 Year
  Sex: Female

DRUGS (8)
  1. RIABNI [Suspect]
     Active Substance: RITUXIMAB-ARRX
     Indication: IMMUNE THROMBOCYTOPENIA
     Dosage: 375 MILLIGRAM/SQ. METER, QWK
     Route: 065
     Dates: start: 20210712, end: 20210727
  2. LISINOPRIL. [Concomitant]
     Active Substance: LISINOPRIL
     Dosage: UNK UNK, QD
     Route: 048
  3. RIABNI [Suspect]
     Active Substance: RITUXIMAB-ARRX
     Indication: NEPHROTIC SYNDROME
  4. RIABNI [Suspect]
     Active Substance: RITUXIMAB-ARRX
     Indication: EVANS SYNDROME
  5. RIABNI [Suspect]
     Active Substance: RITUXIMAB-ARRX
     Indication: OFF LABEL USE
  6. NPLATE [Suspect]
     Active Substance: ROMIPLOSTIM
     Indication: IMMUNE THROMBOCYTOPENIA
     Dosage: UNK, QD
     Route: 065
  7. PREDNISONE. [Concomitant]
     Active Substance: PREDNISONE
     Dosage: UNK UNK, QD
  8. IMURAN [Concomitant]
     Active Substance: AZATHIOPRINE
     Dosage: UNK UNK, QD
     Route: 048

REACTIONS (2)
  - Off label use [Unknown]
  - Respiratory distress [Fatal]

NARRATIVE: CASE EVENT DATE: 20210712
